FAERS Safety Report 24426717 (Version 1)
Quarter: 2024Q4

REPORT INFORMATION
  Report Type: Spontaneous
  Country: US (occurrence: US)
  Receive Date: 20241011
  Receipt Date: 20241011
  Transmission Date: 20250115
  Serious: Yes (Death, Hospitalization, Other)
  Sender: DR REDDYS
  Company Number: US-DRL-USA-LIT/USA/24/0014810

PATIENT
  Age: 68 Year
  Sex: Female

DRUGS (11)
  1. VASOPRESSIN [Suspect]
     Active Substance: VASOPRESSIN
     Indication: BRASH syndrome
  2. EPINEPHRINE [Suspect]
     Active Substance: EPINEPHRINE
     Indication: BRASH syndrome
     Route: 042
  3. NOREPINEPHRINE [Suspect]
     Active Substance: NOREPINEPHRINE\NOREPINEPHRINE BITARTRATE
     Indication: BRASH syndrome
  4. DOPAMINE [Suspect]
     Active Substance: DOPAMINE HYDROCHLORIDE
     Indication: BRASH syndrome
  5. LISINOPRIL [Concomitant]
     Active Substance: LISINOPRIL
     Indication: Hypertension
  6. CALCIUM [Concomitant]
     Active Substance: CALCIUM
     Indication: Overdose
     Route: 042
  7. GLUCAGON [Concomitant]
     Active Substance: GLUCAGON
     Indication: Overdose
     Route: 042
  8. ATROPINE [Concomitant]
     Active Substance: ATROPINE
     Indication: Overdose
  9. INSULIN NOS [Concomitant]
     Active Substance: INSULIN NOS
     Indication: Overdose
     Dosage: HIGH-DOSE
  10. DEXTROSE [Concomitant]
     Active Substance: DEXTROSE MONOHYDRATE
     Indication: Overdose
     Dosage: INFUSION
  11. SODIUM BICARBONATE [Concomitant]
     Active Substance: SODIUM BICARBONATE
     Indication: Overdose
     Dosage: INFUSION
     Route: 042

REACTIONS (2)
  - Intestinal ischaemia [Fatal]
  - Drug ineffective for unapproved indication [Unknown]
